FAERS Safety Report 4370355-5 (Version None)
Quarter: 2004Q2

REPORT INFORMATION
  Report Type: 
  Country: None (occurrence: None)
  Receive Date: 20040603
  Receipt Date: 20040217
  Transmission Date: 20050107
  Serious: No
  Sender: FDA-Public Use
  Company Number: US-BRISTOL-MYERS SQUIBB COMPANY-12509113

PATIENT
  Age: 50 Year
  Sex: Female

DRUGS (3)
  1. ABILIFY [Suspect]
     Indication: BIPOLAR DISORDER
     Route: 048
     Dates: start: 20040201
  2. ABILIFY [Suspect]
     Indication: BORDERLINE PERSONALITY DISORDER
     Route: 048
     Dates: start: 20040201
  3. ZONEGRAN [Concomitant]

REACTIONS (1)
  - LIVER FUNCTION TEST ABNORMAL [None]
